FAERS Safety Report 7763711 (Version 5)
Quarter: 2012Q4

REPORT INFORMATION
  Report Type: Report from Study
  Country: BR (occurrence: BR)
  Receive Date: 20110118
  Receipt Date: 20120911
  Transmission Date: 20130627
  Serious: Yes (Hospitalization)
  Sender: FDA-Public Use
  Company Number: BR-ROCHE-752600

PATIENT
  Age: 44 Year
  Sex: Female

DRUGS (11)
  1. CELLCEPT [Suspect]
     Indication: PROPHYLAXIS AGAINST TRANSPLANT REJECTION
     Route: 065
  2. CELLCEPT [Suspect]
     Route: 065
  3. CYCLOSPORINE [Suspect]
     Indication: PROPHYLAXIS AGAINST TRANSPLANT REJECTION
     Route: 048
  4. CYCLOSPORINE [Suspect]
     Route: 048
  5. CYCLOSPORINE [Suspect]
     Route: 048
  6. CYCLOSPORINE [Suspect]
     Dosage: REDUCED DOSAGE
     Route: 048
     Dates: start: 20110408, end: 20110408
  7. CYCLOSPORINE [Suspect]
     Dosage: REDUCED DOSAGE
     Route: 048
     Dates: start: 20110409, end: 20110412
  8. CYCLOSPORINE [Suspect]
     Dosage: INCREASED DOSAGE
     Route: 048
  9. PREDNISONE/PREDNISONE [Suspect]
     Indication: PROPHYLAXIS AGAINST TRANSPLANT REJECTION
     Route: 065
  10. PREDNISONE/PREDNISONE [Suspect]
     Route: 065
  11. PREDNISONE/PREDNISONE [Suspect]
     Dosage: INCREASED DOSAGE
     Route: 065

REACTIONS (7)
  - Uterine cancer [Not Recovered/Not Resolved]
  - Anaemia [Recovered/Resolved]
  - Thrombophlebitis superficial [Recovered/Resolved]
  - Wound evisceration [Recovered/Resolved with Sequelae]
  - Vaginal haemorrhage [Recovered/Resolved with Sequelae]
  - Pulmonary tuberculosis [Recovered/Resolved]
  - Rectosigmoid cancer [Unknown]
